FAERS Safety Report 7631816-6 (Version None)
Quarter: 2011Q3

REPORT INFORMATION
  Report Type: 
  Country: None (occurrence: None)
  Receive Date: 20110725
  Receipt Date: 20110406
  Transmission Date: 20111222
  Serious: No
  Sender: FDA-Public Use
  Company Number: US-BRISTOL-MYERS SQUIBB COMPANY-15656788

PATIENT
  Age: 73 Year
  Sex: Female

DRUGS (2)
  1. ASPIRIN [Suspect]
  2. COUMADIN [Suspect]
     Dosage: 7.5MG FOR 4 DAYS AND 5MG FOR 10 DAYS

REACTIONS (1)
  - PLATELET COUNT DECREASED [None]
